FAERS Safety Report 4449653-2 (Version None)
Quarter: 2004Q3

REPORT INFORMATION
  Report Type: 
  Country: None (occurrence: None)
  Receive Date: 20040913
  Receipt Date: 20040827
  Transmission Date: 20050211
  Serious: Yes (Hospitalization)
  Sender: FDA-Public Use
  Company Number: 201367

PATIENT
  Age: 56 Year
  Sex: Female

DRUGS (11)
  1. AVONEX [Suspect]
     Indication: MULTIPLE SCLEROSIS
     Dosage: 30 MCG QW IM
     Route: 030
     Dates: start: 19980701
  2. AMBIEN [Concomitant]
  3. VAGIFEM [Concomitant]
  4. BEXTRA [Concomitant]
  5. ATENOLOL [Concomitant]
  6. MULTIVITAMIN [Concomitant]
  7. VITAMIN E [Concomitant]
  8. CALTRATE [Concomitant]
  9. VITAMIN B-12 [Concomitant]
  10. LISINOPRIL [Concomitant]
  11. CLONIDINE HCL [Concomitant]

REACTIONS (1)
  - HYSTERECTOMY [None]
